FAERS Safety Report 5487988-5 (Version None)
Quarter: 2007Q4

REPORT INFORMATION
  Report Type: 
  Country: None (occurrence: None)
  Receive Date: 20071017
  Receipt Date: 20071005
  Transmission Date: 20080405
  Serious: Yes (Other)
  Sender: FDA-Public Use
  Company Number: PL-AMGEN-US246616

PATIENT
  Age: 53 Year
  Sex: Male
  Weight: 50 kg

DRUGS (5)
  1. ENBREL [Suspect]
     Indication: ANKYLOSING SPONDYLITIS
     Route: 058
     Dates: start: 20050701, end: 20050801
  2. ENBREL [Suspect]
     Route: 058
     Dates: start: 20050101, end: 20050901
  3. KETONAL [Concomitant]
     Indication: ANKYLOSING SPONDYLITIS
     Route: 048
  4. ELOCON [Concomitant]
     Indication: PSORIATIC ARTHROPATHY
     Dosage: LOCALLY, TWICE A DAY, OINTMENT
     Dates: start: 20050701
  5. ENCORTON [Concomitant]
     Indication: ANKYLOSING SPONDYLITIS
     Dosage: 10 MG ^OAD^ TABLET
     Route: 048

REACTIONS (1)
  - PSORIATIC ARTHROPATHY [None]
